FAERS Safety Report 15613228 (Version 2)
Quarter: 2018Q4

REPORT INFORMATION
  Report Type: Spontaneous
  Country: US (occurrence: US)
  Receive Date: 20181113
  Receipt Date: 20181115
  Transmission Date: 20190205
  Serious: Yes (Other)
  Sender: FDA-Public Use
  Company Number: US-PFIZER INC-2018465211

PATIENT
  Age: 61 Year
  Sex: Female

DRUGS (3)
  1. MEROPENEM. [Suspect]
     Active Substance: MEROPENEM
     Indication: KLEBSIELLA INFECTION
     Dosage: UNK
  2. MEROPENEM. [Suspect]
     Active Substance: MEROPENEM
     Indication: LIVER ABSCESS
  3. GENTAMICIN. [Concomitant]
     Active Substance: GENTAMICIN
     Indication: KLEBSIELLA INFECTION
     Dosage: UNK
     Route: 037

REACTIONS (2)
  - Seizure [Unknown]
  - Convulsive threshold lowered [Unknown]
